FAERS Safety Report 15451057 (Version 3)
Quarter: 2018Q4

REPORT INFORMATION
  Report Type: Spontaneous
  Country: DE (occurrence: DE)
  Receive Date: 20181001
  Receipt Date: 20181001
  Transmission Date: 20190204
  Serious: Yes (Death, Hospitalization)
  Sender: FDA-Public Use
  Company Number: PHHY2018DE107751

PATIENT
  Age: 59 Year
  Sex: Female

DRUGS (10)
  1. COTRIMOXAZOLE [Concomitant]
     Active Substance: SULFAMETHOXAZOLE\TRIMETHOPRIM
     Indication: INFECTION PROPHYLAXIS
     Dosage: 960 MG, UNK
     Route: 065
  2. EVEROLIMUS. [Suspect]
     Active Substance: EVEROLIMUS
     Indication: IMMUNOSUPPRESSANT DRUG THERAPY
  3. MYCOPHENOLATE [Suspect]
     Active Substance: MYCOPHENOLIC ACID
     Indication: IMMUNOSUPPRESSANT DRUG THERAPY
  4. EVEROLIMUS. [Suspect]
     Active Substance: EVEROLIMUS
     Indication: LUNG TRANSPLANT
     Dosage: 0.6 MG, QD
     Route: 065
  5. TACROLIMUS. [Suspect]
     Active Substance: TACROLIMUS
     Indication: LUNG TRANSPLANT
     Dosage: 1 MG, QD
     Route: 065
  6. MYCOPHENOLATE [Suspect]
     Active Substance: MYCOPHENOLIC ACID
     Indication: LUNG TRANSPLANT
     Dosage: 2 G, QD
     Route: 065
  7. TACROLIMUS. [Suspect]
     Active Substance: TACROLIMUS
     Indication: IMMUNOSUPPRESSANT DRUG THERAPY
  8. PREDNISOLONE. [Suspect]
     Active Substance: PREDNISOLONE
     Indication: LUNG TRANSPLANT
     Dosage: 5 MG, QD
     Route: 065
  9. PREDNISOLONE. [Suspect]
     Active Substance: PREDNISOLONE
     Indication: IMMUNOSUPPRESSANT DRUG THERAPY
  10. ITRACONAZOLE. [Concomitant]
     Active Substance: ITRACONAZOLE
     Indication: INFECTION PROPHYLAXIS
     Dosage: 200 MG, QD
     Route: 065

REACTIONS (21)
  - Multiple organ dysfunction syndrome [Unknown]
  - Gastrointestinal infection [Unknown]
  - Acute respiratory failure [Fatal]
  - Encephalitis [Unknown]
  - Hypokalaemia [Unknown]
  - Rash vesicular [Unknown]
  - Hyponatraemia [Unknown]
  - Liver disorder [Unknown]
  - Coma [Unknown]
  - Abdominal pain [Unknown]
  - Diarrhoea [Unknown]
  - Fatigue [Unknown]
  - Klebsiella infection [Unknown]
  - Product use in unapproved indication [Unknown]
  - Disseminated varicella zoster vaccine virus infection [Unknown]
  - Cerebral infarction [Unknown]
  - Subarachnoid haemorrhage [Unknown]
  - Pain [Unknown]
  - Loss of consciousness [Unknown]
  - Septic shock [Unknown]
  - Pneumonia [Unknown]
